FAERS Safety Report 9747607 (Version 3)
Quarter: 2014Q1

REPORT INFORMATION
  Report Type: Spontaneous
  Country: ES (occurrence: None)
  Receive Date: 20131206
  Receipt Date: 20140226
  Transmission Date: 20141002
  Serious: Yes (Death, Other)
  Sender: FDA-Public Use
  Company Number: 2013MPI00783

PATIENT
  Age: 63 Year
  Sex: Female

DRUGS (5)
  1. BRENTUXIMAB VEDOTIN [Suspect]
     Indication: NON-HODGKIN^S LYMPHOMA
     Route: 042
     Dates: start: 20131118, end: 20131118
  2. OMEPRAZOLE (OMEPRAZOLE) [Concomitant]
  3. FOLIC ACID (FOLIC ACID) [Concomitant]
  4. TRIMETHOPRIM SULFAMETHOXAZOLE (SULFAMETHOXAZOLE, TRIMETHOPRIM) [Concomitant]
  5. TRAMADOL (TRAMADOL HYDROCHLORIDE) [Concomitant]

REACTIONS (10)
  - Death [None]
  - Tumour lysis syndrome [None]
  - Respiratory failure [None]
  - Renal failure [None]
  - Pleural effusion [None]
  - Depressed level of consciousness [None]
  - Haemoglobin increased [None]
  - Blood glucose increased [None]
  - Leukocytosis [None]
  - Mass [None]
